FAERS Safety Report 16431865 (Version 1)
Quarter: 2019Q2

REPORT INFORMATION
  Report Type: Spontaneous
  Country: US (occurrence: US)
  Receive Date: 20190614
  Receipt Date: 20190614
  Transmission Date: 20190711
  Serious: No
  Sender: FDA-Public Use
  Company Number: US-JNJFOC-20150613327

PATIENT
  Sex: Male

DRUGS (79)
  1. RISPERDAL [Suspect]
     Active Substance: RISPERIDONE
     Indication: DEPRESSION
     Dosage: 0.5 MG, 2 MG
     Route: 048
     Dates: start: 2012, end: 2013
  2. RISPERDAL [Suspect]
     Active Substance: RISPERIDONE
     Indication: MOOD SWINGS
     Dosage: 0.5 MG, 2 MG
     Route: 048
     Dates: start: 2012, end: 2013
  3. RISPERDAL [Suspect]
     Active Substance: RISPERIDONE
     Indication: HALLUCINATION
     Dosage: 1 MG, 12.5 MG, 3 MG
     Route: 048
     Dates: start: 2012
  4. RISPERDAL [Suspect]
     Active Substance: RISPERIDONE
     Indication: HALLUCINATION
     Route: 048
     Dates: start: 201208, end: 201312
  5. RISPERDAL [Suspect]
     Active Substance: RISPERIDONE
     Indication: ANTISOCIAL PERSONALITY DISORDER
     Dosage: 1 MG, 12.5 MG, 3 MG
     Route: 048
     Dates: start: 2012
  6. RISPERDAL [Suspect]
     Active Substance: RISPERIDONE
     Indication: ANTISOCIAL PERSONALITY DISORDER
     Route: 048
     Dates: start: 2011, end: 201202
  7. RISPERDAL [Suspect]
     Active Substance: RISPERIDONE
     Indication: ANTISOCIAL PERSONALITY DISORDER
     Dosage: 0.5 MG, 2 MG
     Route: 048
     Dates: start: 2012, end: 2013
  8. RISPERDAL [Suspect]
     Active Substance: RISPERIDONE
     Indication: INTELLECTUAL DISABILITY
     Route: 048
     Dates: start: 201310
  9. RISPERDAL [Suspect]
     Active Substance: RISPERIDONE
     Indication: INTELLECTUAL DISABILITY
     Dosage: 1 MG, 12.5 MG, 3 MG
     Route: 048
     Dates: start: 2012
  10. RISPERDAL [Suspect]
     Active Substance: RISPERIDONE
     Indication: INTELLECTUAL DISABILITY
     Route: 048
     Dates: start: 2011
  11. RISPERDAL CONSTA [Suspect]
     Active Substance: RISPERIDONE
     Indication: ATTENTION DEFICIT/HYPERACTIVITY DISORDER
     Dosage: 12.5 MG, 25 MG
     Route: 030
     Dates: start: 201202
  12. RISPERDAL [Suspect]
     Active Substance: RISPERIDONE
     Indication: DEPRESSION
     Route: 048
     Dates: start: 201202, end: 201207
  13. RISPERDAL [Suspect]
     Active Substance: RISPERIDONE
     Indication: MOOD SWINGS
     Route: 048
     Dates: start: 2011, end: 201202
  14. RISPERDAL [Suspect]
     Active Substance: RISPERIDONE
     Indication: HALLUCINATION
     Dosage: 0.5 MG, 2 MG
     Route: 048
     Dates: start: 2012, end: 2013
  15. RISPERDAL [Suspect]
     Active Substance: RISPERIDONE
     Indication: HALLUCINATION
     Route: 048
     Dates: start: 2011
  16. RISPERDAL [Suspect]
     Active Substance: RISPERIDONE
     Indication: INTELLECTUAL DISABILITY
     Route: 048
     Dates: start: 2014, end: 2015
  17. RISPERDAL [Suspect]
     Active Substance: RISPERIDONE
     Indication: INTELLECTUAL DISABILITY
     Route: 048
     Dates: start: 2011, end: 201202
  18. RISPERDAL [Suspect]
     Active Substance: RISPERIDONE
     Indication: ATTENTION DEFICIT/HYPERACTIVITY DISORDER
     Route: 048
     Dates: start: 2011
  19. RISPERDAL [Suspect]
     Active Substance: RISPERIDONE
     Indication: ATTENTION DEFICIT/HYPERACTIVITY DISORDER
     Dosage: 1 MG, 12.5 MG, 3 MG
     Route: 048
     Dates: start: 2012
  20. RISPERDAL [Suspect]
     Active Substance: RISPERIDONE
     Indication: BIPOLAR DISORDER
     Dosage: 1 MG, 12.5 MG, 3 MG
     Route: 048
     Dates: start: 2012
  21. RISPERDAL CONSTA [Suspect]
     Active Substance: RISPERIDONE
     Indication: DEPRESSION
     Dosage: 12.5MG AND 25 MG
     Route: 030
     Dates: start: 201208, end: 201312
  22. RISPERDAL CONSTA [Suspect]
     Active Substance: RISPERIDONE
     Indication: MOOD SWINGS
     Route: 030
     Dates: start: 201402, end: 201501
  23. RISPERDAL CONSTA [Suspect]
     Active Substance: RISPERIDONE
     Indication: HALLUCINATION
     Dosage: 12.5 MG, 25 MG
     Route: 030
     Dates: start: 201202
  24. RISPERDAL CONSTA [Suspect]
     Active Substance: RISPERIDONE
     Indication: BIPOLAR DISORDER
     Route: 030
     Dates: start: 201402, end: 201501
  25. RISPERDAL [Suspect]
     Active Substance: RISPERIDONE
     Indication: DEPRESSION
     Route: 048
     Dates: start: 201208, end: 201312
  26. RISPERDAL [Suspect]
     Active Substance: RISPERIDONE
     Indication: MOOD SWINGS
     Route: 048
     Dates: start: 201208, end: 201312
  27. RISPERDAL [Suspect]
     Active Substance: RISPERIDONE
     Indication: HALLUCINATION
     Route: 048
     Dates: start: 2011, end: 201202
  28. RISPERDAL [Suspect]
     Active Substance: RISPERIDONE
     Indication: ANTISOCIAL PERSONALITY DISORDER
     Route: 048
     Dates: start: 201202, end: 201207
  29. RISPERDAL [Suspect]
     Active Substance: RISPERIDONE
     Indication: INTELLECTUAL DISABILITY
     Route: 048
     Dates: start: 201202, end: 201207
  30. RISPERDAL [Suspect]
     Active Substance: RISPERIDONE
     Indication: BIPOLAR DISORDER
     Route: 048
     Dates: start: 2014, end: 2015
  31. RISPERDAL CONSTA [Suspect]
     Active Substance: RISPERIDONE
     Indication: HALLUCINATION
     Route: 030
     Dates: start: 201402, end: 201501
  32. RISPERDAL CONSTA [Suspect]
     Active Substance: RISPERIDONE
     Indication: ANTISOCIAL PERSONALITY DISORDER
     Route: 030
     Dates: start: 201402, end: 201501
  33. RISPERDAL CONSTA [Suspect]
     Active Substance: RISPERIDONE
     Indication: ANTISOCIAL PERSONALITY DISORDER
     Dosage: 12.5 MG, 25 MG
     Route: 030
     Dates: start: 201202
  34. RISPERDAL [Suspect]
     Active Substance: RISPERIDONE
     Indication: MOOD SWINGS
     Route: 048
     Dates: start: 201310
  35. RISPERDAL [Suspect]
     Active Substance: RISPERIDONE
     Indication: ANTISOCIAL PERSONALITY DISORDER
     Route: 048
     Dates: start: 2011
  36. RISPERDAL [Suspect]
     Active Substance: RISPERIDONE
     Indication: INTELLECTUAL DISABILITY
     Dosage: 0.5 MG, 2 MG
     Route: 048
     Dates: start: 2012, end: 2013
  37. RISPERDAL [Suspect]
     Active Substance: RISPERIDONE
     Indication: ATTENTION DEFICIT/HYPERACTIVITY DISORDER
     Route: 048
     Dates: start: 2014, end: 2015
  38. RISPERDAL [Suspect]
     Active Substance: RISPERIDONE
     Indication: BIPOLAR DISORDER
     Dosage: 0.5 MG, 2 MG
     Route: 048
     Dates: start: 2012, end: 2013
  39. RISPERDAL [Suspect]
     Active Substance: RISPERIDONE
     Indication: BIPOLAR DISORDER
     Route: 048
     Dates: start: 2011
  40. RISPERDAL [Suspect]
     Active Substance: RISPERIDONE
     Indication: DEPRESSION
     Route: 048
     Dates: start: 2011
  41. RISPERDAL [Suspect]
     Active Substance: RISPERIDONE
     Indication: DEPRESSION
     Route: 048
     Dates: start: 2014, end: 2015
  42. RISPERDAL [Suspect]
     Active Substance: RISPERIDONE
     Indication: DEPRESSION
     Route: 048
     Dates: start: 201310
  43. RISPERDAL [Suspect]
     Active Substance: RISPERIDONE
     Indication: BIPOLAR DISORDER
     Route: 048
     Dates: start: 2011, end: 201202
  44. RISPERDAL CONSTA [Suspect]
     Active Substance: RISPERIDONE
     Indication: DEPRESSION
     Route: 030
     Dates: start: 201402, end: 201501
  45. RISPERDAL CONSTA [Suspect]
     Active Substance: RISPERIDONE
     Indication: MOOD SWINGS
     Dosage: 12.5MG AND 25 MG
     Route: 030
     Dates: start: 201208, end: 201312
  46. RISPERDAL CONSTA [Suspect]
     Active Substance: RISPERIDONE
     Indication: BIPOLAR DISORDER
     Dosage: 12.5 MG, 25 MG
     Route: 030
     Dates: start: 201202
  47. RISPERDAL [Suspect]
     Active Substance: RISPERIDONE
     Indication: MOOD SWINGS
     Dosage: 1 MG, 12.5 MG, 3 MG
     Route: 048
     Dates: start: 2012
  48. RISPERDAL [Suspect]
     Active Substance: RISPERIDONE
     Indication: ANTISOCIAL PERSONALITY DISORDER
     Route: 048
     Dates: start: 2014, end: 2015
  49. RISPERDAL [Suspect]
     Active Substance: RISPERIDONE
     Indication: ATTENTION DEFICIT/HYPERACTIVITY DISORDER
     Route: 048
     Dates: start: 201208, end: 201312
  50. RISPERDAL [Suspect]
     Active Substance: RISPERIDONE
     Indication: BIPOLAR DISORDER
     Route: 048
     Dates: start: 201208, end: 201312
  51. RISPERDAL CONSTA [Suspect]
     Active Substance: RISPERIDONE
     Indication: MOOD SWINGS
     Dosage: 12.5 MG, 25 MG
     Route: 030
     Dates: start: 201202
  52. RISPERDAL CONSTA [Suspect]
     Active Substance: RISPERIDONE
     Indication: ANTISOCIAL PERSONALITY DISORDER
     Dosage: 12.5MG AND 25 MG
     Route: 030
     Dates: start: 201208, end: 201312
  53. RISPERDAL CONSTA [Suspect]
     Active Substance: RISPERIDONE
     Indication: INTELLECTUAL DISABILITY
     Route: 030
     Dates: start: 201402, end: 201501
  54. RISPERIDONE. [Suspect]
     Active Substance: RISPERIDONE
     Indication: PRODUCT USED FOR UNKNOWN INDICATION
     Route: 048
  55. RISPERDAL [Suspect]
     Active Substance: RISPERIDONE
     Indication: MOOD SWINGS
     Route: 048
     Dates: start: 201202, end: 201207
  56. RISPERDAL [Suspect]
     Active Substance: RISPERIDONE
     Indication: HALLUCINATION
     Route: 048
     Dates: start: 2014, end: 2015
  57. RISPERDAL [Suspect]
     Active Substance: RISPERIDONE
     Indication: INTELLECTUAL DISABILITY
     Route: 048
     Dates: start: 201208, end: 201312
  58. RISPERDAL [Suspect]
     Active Substance: RISPERIDONE
     Indication: ATTENTION DEFICIT/HYPERACTIVITY DISORDER
     Route: 048
     Dates: start: 201310
  59. RISPERDAL [Suspect]
     Active Substance: RISPERIDONE
     Indication: ATTENTION DEFICIT/HYPERACTIVITY DISORDER
     Dosage: 0.5 MG, 2 MG
     Route: 048
     Dates: start: 2012, end: 2013
  60. RISPERDAL [Suspect]
     Active Substance: RISPERIDONE
     Indication: BIPOLAR DISORDER
     Route: 048
     Dates: start: 201310
  61. RISPERDAL [Suspect]
     Active Substance: RISPERIDONE
     Indication: BIPOLAR DISORDER
     Route: 048
     Dates: start: 201202, end: 201207
  62. RISPERDAL CONSTA [Suspect]
     Active Substance: RISPERIDONE
     Indication: DEPRESSION
     Dosage: 12.5 MG, 25 MG
     Route: 030
     Dates: start: 201202
  63. RISPERDAL CONSTA [Suspect]
     Active Substance: RISPERIDONE
     Indication: INTELLECTUAL DISABILITY
     Dosage: 12.5 MG, 25 MG
     Route: 030
     Dates: start: 201202
  64. RISPERDAL CONSTA [Suspect]
     Active Substance: RISPERIDONE
     Indication: ATTENTION DEFICIT/HYPERACTIVITY DISORDER
     Route: 030
     Dates: start: 201402, end: 201501
  65. RISPERDAL CONSTA [Suspect]
     Active Substance: RISPERIDONE
     Indication: BIPOLAR DISORDER
     Dosage: 12.5MG AND 25 MG
     Route: 030
     Dates: start: 201208, end: 201312
  66. RISPERIDONE- TAB [Suspect]
     Active Substance: RISPERIDONE
     Indication: PRODUCT USED FOR UNKNOWN INDICATION
     Route: 048
  67. RISPERDAL [Suspect]
     Active Substance: RISPERIDONE
     Indication: DEPRESSION
     Dosage: 1 MG, 12.5 MG, 3 MG
     Route: 048
     Dates: start: 2012
  68. RISPERDAL [Suspect]
     Active Substance: RISPERIDONE
     Indication: DEPRESSION
     Route: 048
     Dates: start: 2011, end: 201202
  69. RISPERDAL [Suspect]
     Active Substance: RISPERIDONE
     Indication: MOOD SWINGS
     Route: 048
     Dates: start: 2014, end: 2015
  70. RISPERDAL [Suspect]
     Active Substance: RISPERIDONE
     Indication: MOOD SWINGS
     Route: 048
     Dates: start: 2011
  71. RISPERDAL [Suspect]
     Active Substance: RISPERIDONE
     Indication: HALLUCINATION
     Route: 048
     Dates: start: 201202, end: 201207
  72. RISPERDAL [Suspect]
     Active Substance: RISPERIDONE
     Indication: HALLUCINATION
     Route: 048
     Dates: start: 201310
  73. RISPERDAL [Suspect]
     Active Substance: RISPERIDONE
     Indication: ANTISOCIAL PERSONALITY DISORDER
     Route: 048
     Dates: start: 201310
  74. RISPERDAL [Suspect]
     Active Substance: RISPERIDONE
     Indication: ANTISOCIAL PERSONALITY DISORDER
     Route: 048
     Dates: start: 201208, end: 201312
  75. RISPERDAL [Suspect]
     Active Substance: RISPERIDONE
     Indication: ATTENTION DEFICIT/HYPERACTIVITY DISORDER
     Route: 048
     Dates: start: 201202, end: 201207
  76. RISPERDAL [Suspect]
     Active Substance: RISPERIDONE
     Indication: ATTENTION DEFICIT/HYPERACTIVITY DISORDER
     Route: 048
     Dates: start: 2011, end: 201202
  77. RISPERDAL CONSTA [Suspect]
     Active Substance: RISPERIDONE
     Indication: HALLUCINATION
     Dosage: 12.5MG AND 25 MG
     Route: 030
     Dates: start: 201208, end: 201312
  78. RISPERDAL CONSTA [Suspect]
     Active Substance: RISPERIDONE
     Indication: INTELLECTUAL DISABILITY
     Dosage: 12.5MG AND 25 MG
     Route: 030
     Dates: start: 201208, end: 201312
  79. RISPERDAL CONSTA [Suspect]
     Active Substance: RISPERIDONE
     Indication: ATTENTION DEFICIT/HYPERACTIVITY DISORDER
     Dosage: 12.5MG AND 25 MG
     Route: 030
     Dates: start: 201208, end: 201312

REACTIONS (2)
  - Gynaecomastia [Unknown]
  - Abnormal weight gain [Unknown]

NARRATIVE: CASE EVENT DATE: 2011
